FAERS Safety Report 7513090-4 (Version None)
Quarter: 2011Q2

REPORT INFORMATION
  Report Type: 
  Country: None (occurrence: None)
  Receive Date: 20110531
  Receipt Date: 20110525
  Transmission Date: 20111010
  Serious: No
  Sender: FDA-Public Use
  Company Number: US-PFIZER INC-2011113726

PATIENT
  Sex: Male
  Weight: 72.5 kg

DRUGS (7)
  1. TERAZOSIN [Concomitant]
     Indication: PROSTATIC DISORDER
     Dosage: UNK
     Route: 065
  2. IMIPRAMINE [Concomitant]
     Indication: BACK DISORDER
     Dosage: UNK
     Route: 065
  3. WARFARIN SODIUM [Suspect]
     Indication: ANTICOAGULANT THERAPY
     Dosage: UNK
     Route: 065
  4. ADVIL LIQUI-GELS [Suspect]
     Indication: PAIN
  5. VITAMIN D [Concomitant]
     Dosage: UNK
     Route: 065
  6. ADVIL LIQUI-GELS [Suspect]
     Indication: INFLAMMATION
     Dosage: 200 MG, 3X/DAY
     Route: 048
     Dates: start: 20110520, end: 20110524
  7. IMIPRAMINE [Concomitant]
     Indication: STRESS

REACTIONS (2)
  - DRUG INTERACTION [None]
  - DRUG INEFFECTIVE [None]
